FAERS Safety Report 6449660-4 (Version None)
Quarter: 2009Q4

REPORT INFORMATION
  Report Type: 
  Country: None (occurrence: None)
  Receive Date: 20091120
  Receipt Date: 20091112
  Transmission Date: 20100525
  Serious: Yes (Other)
  Sender: FDA-Public Use
  Company Number: PHHY2009BR49202

PATIENT
  Sex: Female
  Weight: 73 kg

DRUGS (3)
  1. TRILEPTAL [Suspect]
     Indication: EPILEPSY
     Route: 048
  2. TRILEPTAL [Suspect]
     Dosage: 1 TABLET TID (MORNING, AFTERNOON AND AT NIGHT)
  3. EDHANOL (PHENOBARBITONE) [Concomitant]
     Indication: EPILEPSY
     Dosage: 1 TABLET AT NIGHT
     Route: 048

REACTIONS (3)
  - ABORTION SPONTANEOUS [None]
  - CONVULSION [None]
  - DRUG EXPOSURE DURING PREGNANCY [None]
